FAERS Safety Report 4428861-0 (Version None)
Quarter: 2004Q3

REPORT INFORMATION
  Report Type: 
  Country: None (occurrence: None)
  Receive Date: 20040813
  Receipt Date: 20040809
  Transmission Date: 20050211
  Serious: Yes (Hospitalization)
  Sender: FDA-Public Use
  Company Number: GBWYE964611AUG04

PATIENT
  Age: 63 Year
  Sex: Female

DRUGS (11)
  1. RAPAMUNE [Suspect]
     Indication: IMMUNOSUPPRESSION
     Dosage: ORAL
     Route: 048
     Dates: start: 20040513, end: 20040727
  2. TACROLIMUS (TACROLIMUS) [Concomitant]
  3. VALGANCICLOVIR (VALGANCICLOVIR) [Concomitant]
  4. VALGANCICLOVIR (VALGANCICLOVIR) [Concomitant]
  5. ASPIRIN [Concomitant]
  6. ESOMEPRAZOLE (ESOMEPRAZOLE) [Concomitant]
  7. MONOCOR (BISOPROLOL) [Concomitant]
  8. ACYCLOVIR [Concomitant]
  9. MEROPEN (MEROPENEM) [Concomitant]
  10. CIPROFLOXACIN [Concomitant]
  11. RAMIPRIL [Concomitant]

REACTIONS (5)
  - ACID FAST BACILLI INFECTION [None]
  - CRYPTOGENIC ORGANIZING PNEUMONIA [None]
  - DYSPNOEA EXERTIONAL [None]
  - GRANULOMA [None]
  - PNEUMONITIS [None]
